FAERS Safety Report 5827362-2 (Version None)
Quarter: 2008Q3

REPORT INFORMATION
  Report Type: 
  Country: None (occurrence: None)
  Receive Date: 20080730
  Receipt Date: 20080728
  Transmission Date: 20090109
  Serious: Yes (Hospitalization)
  Sender: FDA-Public Use
  Company Number: FR-BRISTOL-MYERS SQUIBB COMPANY-14280374

PATIENT
  Age: 87 Year
  Sex: Female

DRUGS (4)
  1. COAPROVEL [Suspect]
     Route: 048
     Dates: end: 20080705
  2. TRANSIPEG [Concomitant]
     Route: 048
     Dates: start: 20080620, end: 20080704
  3. TANAKAN [Concomitant]
  4. CORDARONE [Concomitant]

REACTIONS (2)
  - DISORIENTATION [None]
  - HYPONATRAEMIA [None]
